FAERS Safety Report 8859200 (Version 1)
Quarter: 2012Q4

REPORT INFORMATION
  Report Type: Spontaneous
  Country: US (occurrence: None)
  Receive Date: 20121024
  Receipt Date: 20121024
  Transmission Date: 20130627
  Serious: Yes (Other)
  Sender: FDA-Public Use
  Company Number: None

PATIENT
  Age: 22 Year
  Sex: Female
  Weight: 61.24 kg

DRUGS (2)
  1. AMPHETA S/COMBO [Suspect]
     Indication: ADHD
     Dosage: 60 tablets twice a day po
     Route: 048
     Dates: start: 20120924, end: 20121024
  2. ADDERALL [Concomitant]

REACTIONS (20)
  - Palpitations [None]
  - Heart rate increased [None]
  - Dysphagia [None]
  - Choking [None]
  - Cough [None]
  - Dizziness [None]
  - Dizziness [None]
  - Rash macular [None]
  - Feeling hot [None]
  - Asthenia [None]
  - Nausea [None]
  - Vomiting [None]
  - Chest pain [None]
  - Dyspnoea [None]
  - Fatigue [None]
  - Apathy [None]
  - Insomnia [None]
  - Drug ineffective [None]
  - Product substitution issue [None]
  - Product quality issue [None]
